FAERS Safety Report 20820526 (Version 2)
Quarter: 2022Q2

REPORT INFORMATION
  Report Type: Spontaneous
  Country: DE (occurrence: DE)
  Receive Date: 20220512
  Receipt Date: 20220601
  Transmission Date: 20220721
  Serious: Yes (Other)
  Sender: FDA-Public Use
  Company Number: DE-NOVARTISPH-NVSC2022DE108391

PATIENT
  Age: 38 Year
  Sex: Female

DRUGS (4)
  1. OLANZAPINE [Suspect]
     Active Substance: OLANZAPINE
     Indication: Schizophrenia
     Dosage: 5-0-5 MG
     Route: 065
  2. CLOZAPINE [Suspect]
     Active Substance: CLOZAPINE
     Indication: Schizophrenia
     Dosage: 200 MG, QD
     Route: 065
  3. AMISULPRIDE [Suspect]
     Active Substance: AMISULPRIDE
     Indication: Schizophrenia
     Dosage: 200?200-200 MG
     Route: 065
  4. BENPERIDOL [Suspect]
     Active Substance: BENPERIDOL
     Indication: Schizophrenia
     Dosage: 2-0-3 MG
     Route: 065

REACTIONS (3)
  - Anticholinergic syndrome [Unknown]
  - Drug ineffective [Unknown]
  - Extrapyramidal disorder [Unknown]
